FAERS Safety Report 13828591 (Version 1)
Quarter: 2017Q3

REPORT INFORMATION
  Report Type: Spontaneous
  Country: DK (occurrence: DK)
  Receive Date: 20170803
  Receipt Date: 20170803
  Transmission Date: 20171127
  Serious: Yes (Hospitalization)
  Sender: FDA-Public Use
  Company Number: DK-ACCORD-056800

PATIENT
  Sex: Female

DRUGS (2)
  1. OXALIPLATIN ACCORD [Suspect]
     Active Substance: OXALIPLATIN
     Indication: ADENOCARCINOMA OF COLON
     Route: 042
     Dates: start: 20170217
  2. XELODA [Suspect]
     Active Substance: CAPECITABINE
     Indication: ADENOCARCINOMA OF COLON
     Route: 048
     Dates: start: 20170217, end: 20170221

REACTIONS (7)
  - Muscle spasms [Recovered/Resolved]
  - Diarrhoea [Unknown]
  - Atrial fibrillation [Recovered/Resolved]
  - Throat tightness [Recovered/Resolved]
  - Oral fungal infection [Unknown]
  - Dehydration [Unknown]
  - Escherichia urinary tract infection [Unknown]
